FAERS Safety Report 24156660 (Version 1)
Quarter: 2024Q3

REPORT INFORMATION
  Report Type: Spontaneous
  Country: IT (occurrence: IT)
  Receive Date: 20240731
  Receipt Date: 20240731
  Transmission Date: 20241016
  Serious: Yes (Other)
  Sender: LEADING PHARMA
  Company Number: IT-LEADINGPHARMA-IT-2024LEALIT00324

PATIENT
  Age: 62 Year
  Sex: Male

DRUGS (2)
  1. HYDROXYUREA [Suspect]
     Active Substance: HYDROXYUREA
     Indication: Polycythaemia
     Route: 065
  2. HYDROXYUREA [Suspect]
     Active Substance: HYDROXYUREA
     Route: 065

REACTIONS (3)
  - Hypoglycaemia [Recovered/Resolved]
  - Drug-device interaction [Unknown]
  - Product use in unapproved indication [Unknown]
